FAERS Safety Report 8166115-X (Version None)
Quarter: 2012Q1

REPORT INFORMATION
  Report Type: 
  Country: None (occurrence: None)
  Receive Date: 20120227
  Receipt Date: 20110414
  Transmission Date: 20120608
  Serious: No
  Sender: FDA-Public Use
  Company Number: US-MYLANLABS-2011S1006241

PATIENT
  Age: 4 Decade
  Sex: Female
  Weight: 45.36 kg

DRUGS (1)
  1. AMNESTEEM [Suspect]
     Indication: ACNE
     Dates: start: 20110120, end: 20110322

REACTIONS (2)
  - DIZZINESS [None]
  - HEADACHE [None]
